FAERS Safety Report 15340905 (Version 1)
Quarter: 2018Q3

REPORT INFORMATION
  Report Type: Spontaneous
  Country: US (occurrence: US)
  Receive Date: 20180831
  Receipt Date: 20180831
  Transmission Date: 20181010
  Serious: No
  Sender: FDA-Public Use
  Company Number: US-SA-2018SA242559

PATIENT
  Age: 14 Year
  Sex: Male

DRUGS (2)
  1. DUPIXENT [Suspect]
     Active Substance: DUPILUMAB
     Indication: DERMATITIS ATOPIC
     Dosage: 30 MG, QOW
     Route: 058
     Dates: start: 201806
  2. OMNITROPE [Concomitant]
     Active Substance: SOMATROPIN

REACTIONS (2)
  - Dermatitis [Unknown]
  - Drug administered to patient of inappropriate age [Unknown]
